FAERS Safety Report 10447579 (Version 1)
Quarter: 2014Q3

REPORT INFORMATION
  Report Type: Spontaneous
  Country: US (occurrence: None)
  Receive Date: 20140910
  Receipt Date: 20140910
  Transmission Date: 20150326
  Serious: Yes (Hospitalization)
  Sender: FDA-Public Use
  Company Number: None

PATIENT
  Age: 51 Year
  Sex: Female
  Weight: 63 kg

DRUGS (1)
  1. INTRON A [Suspect]
     Active Substance: INTERFERON ALFA-2B
     Dosage: 51 MU, MAINTENACE INTERFERON BEGAN 8/6/14.
     Dates: end: 20140829

REACTIONS (8)
  - Haemorrhage [None]
  - Gastritis erosive [None]
  - Vomiting [None]
  - Retching [None]
  - Gastric occult blood positive [None]
  - Nausea [None]
  - Abdominal pain upper [None]
  - Gastric polyps [None]

NARRATIVE: CASE EVENT DATE: 20140830
